FAERS Safety Report 18469757 (Version 1)
Quarter: 2020Q4

REPORT INFORMATION
  Report Type: Spontaneous
  Country: US (occurrence: US)
  Receive Date: 20201105
  Receipt Date: 20201105
  Transmission Date: 20210114
  Serious: No
  Sender: FDA-Public Use
  Company Number: US-PFIZER INC-2020425074

PATIENT
  Age: 30 Year
  Sex: Male
  Weight: 95.25 kg

DRUGS (3)
  1. VIAGRA [Suspect]
     Active Substance: SILDENAFIL CITRATE
     Indication: ANORGASMIA
     Dosage: 50 MG
  2. VIAGRA [Suspect]
     Active Substance: SILDENAFIL CITRATE
     Indication: ERECTILE DYSFUNCTION
     Dosage: 100 MG
  3. MOTRIN [Suspect]
     Active Substance: IBUPROFEN
     Indication: EXCESSIVE EXERCISE
     Dosage: 400 MG

REACTIONS (1)
  - Erection increased [Unknown]
